FAERS Safety Report 8121623-2 (Version None)
Quarter: 2012Q1

REPORT INFORMATION
  Report Type: 
  Country: None (occurrence: None)
  Receive Date: 20120208
  Receipt Date: 20120208
  Transmission Date: 20120608
  Serious: No
  Sender: FDA-Public Use
  Company Number: None

PATIENT
  Age: 57 Year
  Sex: Male
  Weight: 70.306 kg

DRUGS (2)
  1. CYMBALTA [Concomitant]
     Dosage: 20 MG
     Route: 048
     Dates: start: 20111201, end: 20120206
  2. CYMBALTA [Suspect]
     Indication: FIBROMYALGIA
     Dosage: 30 MG
     Route: 048
     Dates: start: 20090601, end: 20111201

REACTIONS (21)
  - MALAISE [None]
  - FATIGUE [None]
  - NAUSEA [None]
  - TREMOR [None]
  - CONTUSION [None]
  - VOMITING [None]
  - DIARRHOEA [None]
  - IRRITABILITY [None]
  - RESTLESSNESS [None]
  - TINNITUS [None]
  - PANIC ATTACK [None]
  - ASTHENIA [None]
  - INSOMNIA [None]
  - SLUGGISHNESS [None]
  - DIZZINESS [None]
  - HEADACHE [None]
  - MUSCULOSKELETAL STIFFNESS [None]
  - DYSURIA [None]
  - FEELING ABNORMAL [None]
  - DRUG INEFFECTIVE [None]
  - URINE OUTPUT DECREASED [None]
